FAERS Safety Report 5304862-5 (Version None)
Quarter: 2007Q2

REPORT INFORMATION
  Report Type: 
  Country: None (occurrence: None)
  Receive Date: 20070423
  Receipt Date: 20070413
  Transmission Date: 20071010
  Serious: Yes (Other)
  Sender: FDA-Public Use
  Company Number: PT-PFIZER INC-2007029299

PATIENT
  Sex: Male

DRUGS (3)
  1. ALDACTONE [Suspect]
     Indication: HYPERTENSION
     Route: 048
     Dates: start: 20051001, end: 20070301
  2. COAPROVEL [Concomitant]
     Indication: HYPERTENSION
     Dosage: TEXT:300MG IRBESARTAN/12.5 MG HCTZ BID
     Route: 048
  3. FENOFIBRATE [Concomitant]
     Dosage: DAILY DOSE:267MG
     Route: 048

REACTIONS (2)
  - GYNAECOMASTIA [None]
  - LIPOMATOSIS [None]
